FAERS Safety Report 20707510 (Version 2)
Quarter: 2022Q2

REPORT INFORMATION
  Report Type: Spontaneous
  Country: US (occurrence: US)
  Receive Date: 20220413
  Receipt Date: 20220426
  Transmission Date: 20220720
  Serious: Yes (Hospitalization)
  Sender: FDA-Public Use
  Company Number: US-TEVA-2022-US-2025939

PATIENT
  Age: 62 Year
  Sex: Female

DRUGS (4)
  1. TRETINOIN [Suspect]
     Active Substance: TRETINOIN
     Indication: Acute promyelocytic leukaemia
     Dosage: INITIAL DOSE NOT STATED
     Route: 065
  2. TRETINOIN [Suspect]
     Active Substance: TRETINOIN
     Dosage: 45 MG/M2 DAILY; FOR 5 DAYS IN A WEEK
     Route: 065
  3. ARSENIC TRIOXIDE [Suspect]
     Active Substance: ARSENIC TRIOXIDE
     Indication: Acute promyelocytic leukaemia
     Dosage: FOR 5 DAYS IN A WEEK, 0.15 MG/KG
     Route: 065
  4. PREDNISONE [Concomitant]
     Active Substance: PREDNISONE
     Indication: Prophylaxis
     Dosage: .5 MG/KG DAILY;
     Route: 065

REACTIONS (2)
  - Differentiation syndrome [Recovered/Resolved]
  - Myopericarditis [Recovered/Resolved]
